FAERS Safety Report 21732746 (Version 3)
Quarter: 2023Q1

REPORT INFORMATION
  Report Type: Report from Study
  Country: US (occurrence: US)
  Receive Date: 20221215
  Receipt Date: 20230325
  Transmission Date: 20230418
  Serious: No
  Sender: FDA-Public Use
  Company Number: US-ABBVIE-22K-163-4346750-00

PATIENT
  Sex: Female
  Weight: 71.213 kg

DRUGS (11)
  1. HUMIRA [Suspect]
     Active Substance: ADALIMUMAB
     Indication: Rheumatoid arthritis
     Dosage: CITRATE FREE
     Route: 058
  2. HUMIRA [Suspect]
     Active Substance: ADALIMUMAB
     Dosage: CITRATE FREE
     Route: 058
     Dates: start: 20170507
  3. HUMIRA [Suspect]
     Active Substance: ADALIMUMAB
     Dosage: CITRATE FREE
     Route: 058
     Dates: start: 20170502
  4. HUMIRA [Suspect]
     Active Substance: ADALIMUMAB
     Dosage: CITRATE FREE
     Route: 058
     Dates: start: 20181101
  5. HUMIRA [Suspect]
     Active Substance: ADALIMUMAB
     Dosage: CITRATE FREE
     Route: 058
     Dates: start: 20181101
  6. HUMIRA [Suspect]
     Active Substance: ADALIMUMAB
     Dosage: CITRATE FREE
     Route: 058
  7. LEVOMEFOLIC ACID\METHYLCOBALAMIN\TURMERIC [Suspect]
     Active Substance: LEVOMEFOLIC ACID\METHYLCOBALAMIN\TURMERIC
     Indication: Product used for unknown indication
     Route: 065
  8. MODERNA COVID-19 VACCINE [Concomitant]
     Active Substance: ELASOMERAN
     Indication: COVID-19 immunisation
     Dosage: FIRST DOSE?FREQUENCY 1 IN ONCE
     Route: 030
     Dates: start: 20210212, end: 20210212
  9. MODERNA COVID-19 VACCINE [Concomitant]
     Active Substance: ELASOMERAN
     Indication: COVID-19 immunisation
     Dosage: SECOND DOSE?FREQUENCY 1 IN ONCE
     Route: 030
     Dates: start: 20210312, end: 20210312
  10. MODERNA COVID-19 VACCINE [Concomitant]
     Active Substance: ELASOMERAN
     Indication: COVID-19 immunisation
     Dosage: BOOSTER DOSE?FREQUENCY 1 IN ONCE
     Route: 030
     Dates: start: 20211110, end: 20211110
  11. PREDNISONE [Concomitant]
     Active Substance: PREDNISONE
     Indication: Product used for unknown indication

REACTIONS (33)
  - Joint range of motion decreased [Unknown]
  - Inflammation [Unknown]
  - Joint space narrowing [Not Recovered/Not Resolved]
  - Mobility decreased [Unknown]
  - Ligament rupture [Not Recovered/Not Resolved]
  - Feeding disorder [Unknown]
  - Tendonitis [Not Recovered/Not Resolved]
  - Bursitis [Unknown]
  - Irritable bowel syndrome [Unknown]
  - Peripheral swelling [Recovering/Resolving]
  - Grip strength decreased [Unknown]
  - Malaise [Unknown]
  - Pain in extremity [Not Recovered/Not Resolved]
  - Dactylitis [Unknown]
  - Ligament sprain [Recovered/Resolved]
  - Feeling hot [Unknown]
  - Pain [Unknown]
  - Psoriatic arthropathy [Not Recovered/Not Resolved]
  - Muscle tightness [Unknown]
  - Adverse drug reaction [Not Recovered/Not Resolved]
  - Flushing [Unknown]
  - Muscle atrophy [Unknown]
  - Dry mouth [Recovered/Resolved]
  - Rheumatoid arthritis [Not Recovered/Not Resolved]
  - Influenza like illness [Unknown]
  - Secretion discharge [Unknown]
  - Diverticulitis [Recovering/Resolving]
  - Arthritis [Unknown]
  - Gait disturbance [Unknown]
  - Exostosis [Not Recovered/Not Resolved]
  - Autoimmune disorder [Unknown]
  - Fatigue [Not Recovered/Not Resolved]
  - Arthropathy [Unknown]

NARRATIVE: CASE EVENT DATE: 20220101
